FAERS Safety Report 6816916-2 (Version None)
Quarter: 2010Q3

REPORT INFORMATION
  Report Type: 
  Country: None (occurrence: None)
  Receive Date: 20100706
  Receipt Date: 20100623
  Transmission Date: 20110219
  Serious: Yes (Other)
  Sender: FDA-Public Use
  Company Number: ES-JNJFOC-20100607058

PATIENT
  Sex: Female
  Weight: 65 kg

DRUGS (2)
  1. REMICADE [Suspect]
     Indication: RHEUMATOID ARTHRITIS
     Dosage: 3-3.99 MG/KG
     Route: 042
  2. REMICADE [Suspect]
     Dosage: 3-3.99 MG/KG
     Route: 042

REACTIONS (1)
  - ADVERSE EVENT [None]
